APPROVED DRUG PRODUCT: GLIPIZIDE
Active Ingredient: GLIPIZIDE
Strength: 15MG
Dosage Form/Route: TABLET;ORAL
Application: A214874 | Product #004
Applicant: RUBICON RESEARCH LTD
Approved: Feb 4, 2026 | RLD: No | RS: Yes | Type: RX